FAERS Safety Report 22043301 (Version 1)
Quarter: 2023Q1

REPORT INFORMATION
  Report Type: Spontaneous
  Country: GB (occurrence: GB)
  Receive Date: 20230228
  Receipt Date: 20230228
  Transmission Date: 20230417
  Serious: Yes (Death, Hospitalization, Other)
  Sender: FDA-Public Use
  Company Number: GB-AMGEN-GBRSP2023032755

PATIENT

DRUGS (1)
  1. CARFILZOMIB [Suspect]
     Active Substance: CARFILZOMIB
     Indication: Plasma cell myeloma refractory
     Dosage: UNK
     Route: 065

REACTIONS (9)
  - Death [Fatal]
  - Infection [Unknown]
  - Escherichia bacteraemia [Unknown]
  - Cytomegalovirus infection reactivation [Unknown]
  - Plasma cell myeloma refractory [Unknown]
  - Plasma cell myeloma [Unknown]
  - Sepsis [Unknown]
  - Respiratory tract infection [Unknown]
  - Off label use [Unknown]
